FAERS Safety Report 11421421 (Version 1)
Quarter: 2015Q3

REPORT INFORMATION
  Report Type: Report from Study
  Country: RO (occurrence: RO)
  Receive Date: 20150826
  Receipt Date: 20150826
  Transmission Date: 20151125
  Serious: Yes (Death, Hospitalization)
  Sender: FDA-Public Use
  Company Number: RO-ABBVIE-15P-135-1451611-00

PATIENT
  Sex: Female

DRUGS (3)
  1. SEROQUEL [Concomitant]
     Active Substance: QUETIAPINE FUMARATE
     Indication: PRODUCT USED FOR UNKNOWN INDICATION
     Route: 065
  2. TERTENSIF [Concomitant]
     Indication: PRODUCT USED FOR UNKNOWN INDICATION
     Route: 065
  3. DUODOPA [Suspect]
     Active Substance: CARBIDOPA\LEVODOPA
     Indication: PRODUCT USED FOR UNKNOWN INDICATION
     Dosage: MD 11 ML, CR 3.8 ML/H, ED 2 ML
     Route: 065
     Dates: start: 20130822, end: 20150820

REACTIONS (4)
  - Cardio-respiratory arrest [Fatal]
  - Gastrointestinal disorder [Fatal]
  - Volvulus [Fatal]
  - Abdominal pain [Fatal]

NARRATIVE: CASE EVENT DATE: 20150815
